FAERS Safety Report 6406905-4 (Version None)
Quarter: 2009Q4

REPORT INFORMATION
  Report Type: 
  Country: None (occurrence: None)
  Receive Date: 20091020
  Receipt Date: 20091006
  Transmission Date: 20100525
  Serious: Yes (Hospitalization)
  Sender: FDA-Public Use
  Company Number: CH-ASTRAZENECA-2008PK01699

PATIENT
  Age: 79 Year
  Sex: Female

DRUGS (7)
  1. NEXIUM [Suspect]
     Indication: GASTROOESOPHAGEAL REFLUX DISEASE
     Route: 048
  2. FOSAMAX [Suspect]
     Indication: OSTEOPOROSIS POSTMENOPAUSAL
     Route: 048
     Dates: start: 20030101
  3. ACTONEL [Suspect]
     Indication: OSTEOPOROSIS POSTMENOPAUSAL
     Route: 048
     Dates: end: 20030101
  4. CALCIMAGON-D3 [Concomitant]
     Indication: OSTEOPOROSIS POSTMENOPAUSAL
     Route: 048
  5. ATACAND [Concomitant]
     Indication: ESSENTIAL HYPERTENSION
     Route: 048
  6. FERRUM HAUSMANN [Concomitant]
     Indication: HAEMORRHAGIC ANAEMIA
     Route: 048
     Dates: start: 20070301, end: 20070601
  7. FOLIC ACID [Concomitant]
     Indication: HAEMORRHAGIC ANAEMIA
     Route: 048
     Dates: start: 20070301, end: 20070601

REACTIONS (2)
  - FEMUR FRACTURE [None]
  - IMPAIRED HEALING [None]
